FAERS Safety Report 23931842 (Version 1)
Quarter: 2024Q2

REPORT INFORMATION
  Report Type: Spontaneous
  Country: US (occurrence: None)
  Receive Date: 20240603
  Receipt Date: 20240603
  Transmission Date: 20240716
  Serious: No
  Sender: FDA-Public Use
  Company Number: 2024A109310

PATIENT
  Sex: Male

DRUGS (2)
  1. SYMBICORT [Suspect]
     Active Substance: BUDESONIDE\FORMOTEROL FUMARATE DIHYDRATE
     Dosage: UNKNOWN UNKNOWN
     Route: 055
  2. DULERA [Suspect]
     Active Substance: FORMOTEROL FUMARATE DIHYDRATE\MOMETASONE FUROATE

REACTIONS (8)
  - Inflammatory bowel disease [Unknown]
  - Therapeutic response unexpected [Unknown]
  - Dyspepsia [Unknown]
  - Dyspnoea [Unknown]
  - Anaemia [Unknown]
  - Iron deficiency [Unknown]
  - Amnesia [Unknown]
  - Product dose omission issue [Unknown]
